FAERS Safety Report 10177608 (Version 2)
Quarter: 2014Q2

REPORT INFORMATION
  Report Type: Spontaneous
  Country: US (occurrence: US)
  Receive Date: 20140516
  Receipt Date: 20140516
  Transmission Date: 20141212
  Serious: Yes (Other)
  Sender: FDA-Public Use
  Company Number: US-INCYTE CORPORATION-2014IN000633

PATIENT
  Age: 71 Year
  Sex: Female

DRUGS (7)
  1. JAKAFI [Suspect]
     Indication: MYELOFIBROSIS
     Dosage: 20 MG, BID
     Route: 048
     Dates: start: 20140320
  2. GABAPENTIN [Concomitant]
  3. FENOFIBRATE [Concomitant]
  4. PROPRANOLOL [Concomitant]
  5. CITALOPRAM [Concomitant]
  6. TYLENOL                            /00020001/ [Concomitant]
  7. ALIGN [Concomitant]

REACTIONS (2)
  - Confusional state [Not Recovered/Not Resolved]
  - Headache [Unknown]
